FAERS Safety Report 23833277 (Version 1)
Quarter: 2024Q2

REPORT INFORMATION
  Report Type: Spontaneous
  Country: CN (occurrence: CN)
  Receive Date: 20240508
  Receipt Date: 20240508
  Transmission Date: 20240716
  Serious: Yes (Other)
  Sender: FDA-Public Use
  Company Number: CN-NAPPMUNDI-GBR-2024-0116414

PATIENT
  Age: 70 Year
  Sex: Male
  Weight: 68 kg

DRUGS (3)
  1. OXYCODONE HYDROCHLORIDE [Suspect]
     Active Substance: OXYCODONE HYDROCHLORIDE
     Indication: Tumour pain
     Dosage: 10 MILLIGRAM, Q12H
     Route: 048
     Dates: start: 20240412, end: 202404
  2. OXYCODONE HYDROCHLORIDE [Suspect]
     Active Substance: OXYCODONE HYDROCHLORIDE
     Dosage: 20 MILLIGRAM, Q12H
     Route: 048
     Dates: start: 20240414, end: 202404
  3. OXYCODONE HYDROCHLORIDE [Suspect]
     Active Substance: OXYCODONE HYDROCHLORIDE
     Dosage: 30 MILLIGRAM, Q12H
     Route: 048
     Dates: start: 20240418, end: 20240420

REACTIONS (3)
  - Altered state of consciousness [Recovering/Resolving]
  - Fall [Recovering/Resolving]
  - Face injury [Recovering/Resolving]

NARRATIVE: CASE EVENT DATE: 20240420
